FAERS Safety Report 4783242-5 (Version None)
Quarter: 2005Q3

REPORT INFORMATION
  Report Type: 
  Country: None (occurrence: None)
  Receive Date: 20050928
  Receipt Date: 20050928
  Transmission Date: 20060218
  Serious: Yes (Other)
  Sender: FDA-Public Use
  Company Number: None

PATIENT
  Age: 51 Year
  Sex: Female
  Weight: 62.5964 kg

DRUGS (1)
  1. ZOMETA [Suspect]
     Indication: BREAST CANCER METASTATIC
     Dosage: IV
     Route: 042

REACTIONS (4)
  - IMPAIRED HEALING [None]
  - JAW DISORDER [None]
  - POST PROCEDURAL COMPLICATION [None]
  - TOOTH EXTRACTION [None]
